FAERS Safety Report 8097820-1 (Version None)
Quarter: 2012Q1

REPORT INFORMATION
  Report Type: 
  Country: None (occurrence: None)
  Receive Date: 20120128
  Receipt Date: 20110805
  Transmission Date: 20120608
  Serious: No
  Sender: FDA-Public Use
  Company Number: US-ABBOTT-11P-163-0844547-00

PATIENT
  Age: 50 Year
  Sex: Female

DRUGS (3)
  1. AMITRIPTYLINE HCL [Concomitant]
     Indication: ABDOMINAL PAIN UPPER
  2. PANTOPRAZOLE [Concomitant]
     Indication: GASTROOESOPHAGEAL REFLUX DISEASE
  3. HUMIRA [Suspect]
     Indication: CROHN'S DISEASE
     Dates: start: 20110201

REACTIONS (4)
  - HEADACHE [None]
  - DRUG INEFFECTIVE [None]
  - ABDOMINAL PAIN [None]
  - LIQUID PRODUCT PHYSICAL ISSUE [None]
